FAERS Safety Report 10489690 (Version 2)
Quarter: 2014Q4

REPORT INFORMATION
  Report Type: Report from Study
  Country: DE (occurrence: DE)
  Receive Date: 20141002
  Receipt Date: 20141002
  Transmission Date: 20150528
  Serious: Yes (Hospitalization)
  Sender: FDA-Public Use
  Company Number: PHHY2014DE039407

PATIENT
  Age: 79 Year
  Sex: Female
  Weight: 65 kg

DRUGS (6)
  1. CRATAEGUTT NOVO [Suspect]
     Active Substance: CRATAEGUS LAEVIGATA LEAF
     Indication: PROPHYLAXIS
  2. ACIDUM SALICYLICUM [Concomitant]
     Indication: PROPHYLAXIS
  3. TEBONIN [Suspect]
     Active Substance: GINKGO
     Indication: PROPHYLAXIS
  4. LUCENTIS [Suspect]
     Active Substance: RANIBIZUMAB
     Dosage: 2.3 MG, UNK
     Route: 031
     Dates: start: 20131111
  5. LUCENTIS [Suspect]
     Active Substance: RANIBIZUMAB
     Dosage: 2.3 MG, UNK
     Route: 031
     Dates: start: 20130312
  6. ENALAPRIL [Suspect]
     Active Substance: ENALAPRIL

REACTIONS (7)
  - Carotid arteriosclerosis [Unknown]
  - Aortic valve incompetence [Unknown]
  - Arteriosclerosis coronary artery [Unknown]
  - Dyspnoea exertional [Unknown]
  - Osteoarthritis [Unknown]
  - Chest discomfort [Unknown]
  - Musculoskeletal discomfort [Unknown]

NARRATIVE: CASE EVENT DATE: 20140323
